FAERS Safety Report 8088255-6 (Version None)
Quarter: 2012Q1

REPORT INFORMATION
  Report Type: 
  Country: None (occurrence: None)
  Receive Date: 20120128
  Receipt Date: 20110422
  Transmission Date: 20120608
  Serious: No
  Sender: FDA-Public Use
  Company Number: US-ABBOTT-11P-163-0721248-00

PATIENT
  Age: 39 Year
  Sex: Female

DRUGS (3)
  1. ANTIBIOTICS [Concomitant]
     Indication: RHEUMATOID ARTHRITIS
     Dosage: ONCE PER DAY, WEANING OFF
  2. HUMIRA [Suspect]
     Indication: RHEUMATOID ARTHRITIS
     Dates: start: 20101101
  3. METHOTREXATE [Concomitant]
     Indication: RHEUMATOID ARTHRITIS
     Dosage: 6 PILLS PER WEEK

REACTIONS (1)
  - URTICARIA [None]
